FAERS Safety Report 5983310-6 (Version None)
Quarter: 2008Q4

REPORT INFORMATION
  Report Type: 
  Country: None (occurrence: None)
  Receive Date: 20081208
  Receipt Date: 20080613
  Transmission Date: 20090506
  Serious: No
  Sender: FDA-Public Use
  Company Number: US-BAYER-200812759BCC

PATIENT
  Age: 60 Year
  Sex: Female
  Weight: 64 kg

DRUGS (4)
  1. ALEVE [Suspect]
     Indication: NASOPHARYNGITIS
     Dosage: AS USED: 220 MG  UNIT DOSE: 220 MG
     Route: 048
     Dates: start: 20080610, end: 20080613
  2. CYMBALTA [Concomitant]
  3. SIMVASTATIN [Concomitant]
  4. IBUPROFEN TABLETS [Concomitant]

REACTIONS (3)
  - NASOPHARYNGITIS [None]
  - POOR QUALITY SLEEP [None]
  - RESTLESSNESS [None]
